FAERS Safety Report 4550062-6 (Version None)
Quarter: 2005Q1

REPORT INFORMATION
  Report Type: 
  Country: None (occurrence: None)
  Receive Date: 20050110
  Receipt Date: 20041228
  Transmission Date: 20050727
  Serious: Yes (Disabling)
  Sender: FDA-Public Use
  Company Number: 2004237093US

PATIENT
  Sex: Female

DRUGS (2)
  1. VORICONAZOLE (VORICONAZOLE) [Suspect]
     Indication: ILL-DEFINED DISORDER
  2. ETHAMBUTOL (ETHAMBUTOL) [Suspect]
     Indication: ATYPICAL MYCOBACTERIAL INFECTION

REACTIONS (2)
  - BLINDNESS [None]
  - OPTIC NEURITIS [None]
